FAERS Safety Report 24684460 (Version 3)
Quarter: 2024Q4

REPORT INFORMATION
  Report Type: Spontaneous
  Country: US (occurrence: US)
  Receive Date: 20241202
  Receipt Date: 20241225
  Transmission Date: 20250115
  Serious: No
  Sender: ROCHE
  Company Number: US-ROCHE-10000145306

PATIENT
  Age: 59 Year
  Sex: Female
  Weight: 75.3 kg

DRUGS (5)
  1. XOLAIR PFS [Suspect]
     Active Substance: OMALIZUMAB
     Indication: Idiopathic urticaria
     Dosage: STRENGTH:150MG/ML
     Route: 058
  2. XOLAIR PFS [Suspect]
     Active Substance: OMALIZUMAB
  3. VITAMIN D3 [Concomitant]
     Active Substance: CHOLECALCIFEROL
     Dosage: IN THE MORNING WITH WATER, GEL CAPSULE.
     Route: 048
  4. HAIR SKIN NAILS [Concomitant]
     Dosage: HELPS THE NAILS AND HAIR BE STRONGER AND THE SKIN CLEARER
     Route: 048
     Dates: start: 202411
  5. HYDROCHLOROTHIAZIDE [Concomitant]
     Active Substance: HYDROCHLOROTHIAZIDE
     Indication: Joint swelling
     Route: 048
     Dates: start: 2022

REACTIONS (5)
  - Pain [Recovered/Resolved]
  - Needle issue [Unknown]
  - Poor quality device used [Unknown]
  - Wrong technique in device usage process [Unknown]
  - Pain in extremity [Recovered/Resolved]

NARRATIVE: CASE EVENT DATE: 20241127
